FAERS Safety Report 6905078-9 (Version None)
Quarter: 2010Q3

REPORT INFORMATION
  Report Type: 
  Country: None (occurrence: None)
  Receive Date: 20100804
  Receipt Date: 20090916
  Transmission Date: 20110219
  Serious: No
  Sender: FDA-Public Use
  Company Number: US-PFIZER INC-2009237673

PATIENT
  Sex: Female

DRUGS (6)
  1. LYRICA [Suspect]
     Indication: NEUROPATHY PERIPHERAL
  2. REBIF [Suspect]
     Indication: MULTIPLE SCLEROSIS
     Dosage: 44 MG, UNK
     Route: 051
     Dates: start: 20081001
  3. VYTORIN [Suspect]
     Indication: BLOOD CHOLESTEROL
     Dosage: 10/20 UNK, 1X/DAY
     Dates: start: 20090601
  4. VICODIN [Concomitant]
  5. DARVOCET-N 100 [Concomitant]
  6. FLEXERIL [Concomitant]

REACTIONS (3)
  - BLOOD CHOLESTEROL INCREASED [None]
  - DEPRESSION [None]
  - WEIGHT DECREASED [None]
